FAERS Safety Report 17788374 (Version 1)
Quarter: 2020Q2

REPORT INFORMATION
  Report Type: Spontaneous
  Country: DE (occurrence: DE)
  Receive Date: 20200514
  Receipt Date: 20200514
  Transmission Date: 20200714
  Serious: Yes (Hospitalization, Congenital Anomaly, Other)
  Sender: FDA-Public Use
  Company Number: DE-MYLANLABS-2020M1046530

PATIENT
  Age: 1 Day
  Sex: Male
  Weight: 2.49 kg

DRUGS (3)
  1. INFLIXIMAB [Concomitant]
     Active Substance: INFLIXIMAB
     Dosage: UNK
     Route: 064
  2. BETAMETHASONE. [Concomitant]
     Active Substance: BETAMETHASONE
     Indication: MATERNAL THERAPY TO ENHANCE FOETAL LUNG MATURITY
     Dosage: UNK
     Route: 064
  3. CANDESARTAN. [Suspect]
     Active Substance: CANDESARTAN
     Indication: HYPERTENSION
     Dosage: 8 MILLIGRAM, QD (8 [MG/D ])
     Route: 064
     Dates: start: 20181203, end: 20190724

REACTIONS (13)
  - Vena cava thrombosis [Recovered/Resolved]
  - Joint contracture [Recovering/Resolving]
  - Cranial sutures widening [Not Recovered/Not Resolved]
  - Atrial septal defect [Not Recovered/Not Resolved]
  - Nephropathy [Recovering/Resolving]
  - Selective eating disorder [Recovered/Resolved]
  - Pulmonary artery thrombosis [Recovered/Resolved]
  - Ventricular septal defect [Not Recovered/Not Resolved]
  - Dysmorphism [Unknown]
  - Foetal exposure during pregnancy [Recovered/Resolved]
  - Patent ductus arteriosus [Not Recovered/Not Resolved]
  - Pulmonary hypoplasia [Recovering/Resolving]
  - Premature baby [Recovered/Resolved]

NARRATIVE: CASE EVENT DATE: 20190724
